FAERS Safety Report 6342465-4 (Version None)
Quarter: 2009Q3

REPORT INFORMATION
  Report Type: 
  Country: None (occurrence: None)
  Receive Date: 20090908
  Receipt Date: 20090828
  Transmission Date: 20100115
  Serious: No
  Sender: FDA-Public Use
  Company Number: US-BAYER-200928627NA

PATIENT
  Age: 45 Year
  Sex: Female

DRUGS (4)
  1. BETASERON [Suspect]
     Indication: MULTIPLE SCLEROSIS
     Dosage: 6 MONTH PERIOD IN 1996 WHEN SHE CHANGED TO AVONEX
     Route: 058
     Dates: start: 19940101, end: 19960101
  2. BETASERON [Suspect]
     Dosage: STOPPED BETASERON BRIEFLY WHEN AN ELEVATED LIVER FUNCTION TEST RESULTED
     Route: 058
     Dates: end: 20050101
  3. BETASERON [Suspect]
     Dosage: STOPPED WHEN ANOTHER ELEVATED LIVER FUNCTION TEST RESULTED
     Route: 058
     Dates: end: 20070101
  4. POLYGAM S/D [Concomitant]
     Dates: start: 19990101

REACTIONS (2)
  - HEPATIC FUNCTION ABNORMAL [None]
  - LIVER FUNCTION TEST ABNORMAL [None]
